FAERS Safety Report 4516962-8 (Version None)
Quarter: 2004Q4

REPORT INFORMATION
  Report Type: 
  Country: None (occurrence: None)
  Receive Date: 20041130
  Receipt Date: 20041119
  Transmission Date: 20050328
  Serious: Yes (Hospitalization)
  Sender: FDA-Public Use
  Company Number: STA-AE-04-MTX-553

PATIENT
  Age: 69 Year
  Sex: Female

DRUGS (9)
  1. RHEUMATREX [Suspect]
     Indication: RHEUMATOID ARTHRITIS
     Dosage: 6 MG 1 X PER 1 WK, ORAL
     Route: 048
     Dates: start: 20000901, end: 20041001
  2. METHOTREXATE [Concomitant]
  3. PREDNISOLONE [Concomitant]
  4. METALCAPTASE (PENICILLAMINE) [Concomitant]
  5. NABOAL- SLOW RELEASE (DICLOFENAC SODIUM) [Concomitant]
  6. MUCOSTA (REBAMIPIDE) [Concomitant]
  7. LANSOPRAZOLE [Concomitant]
  8. ALFAROL (ALFACALCIDOL) [Concomitant]
  9. CEFTRIAXONE [Concomitant]

REACTIONS (5)
  - DEHYDRATION [None]
  - METABOLIC ACIDOSIS [None]
  - PANCYTOPENIA [None]
  - RENAL FAILURE [None]
  - STEVENS-JOHNSON SYNDROME [None]
